FAERS Safety Report 11363041 (Version 1)
Quarter: 2015Q3

REPORT INFORMATION
  Report Type: Report from Study
  Country: US (occurrence: US)
  Receive Date: 20150810
  Receipt Date: 20150810
  Transmission Date: 20151125
  Serious: Yes (Other)
  Sender: FDA-Public Use
  Company Number: US-GILEAD-2015-0165582AA

PATIENT
  Age: 71 Year
  Sex: Female

DRUGS (1)
  1. LEDIPASVIR/SOFOSBUVIR [Suspect]
     Active Substance: LEDIPASVIR\SOFOSBUVIR
     Indication: CHRONIC HEPATITIS C
     Dosage: 1 DF, UNK
     Route: 048
     Dates: start: 20141025, end: 20150410

REACTIONS (5)
  - Dysarthria [Unknown]
  - Hypertension [Unknown]
  - Paraesthesia [Unknown]
  - Dysphagia [Unknown]
  - Cerebrovascular accident [Unknown]
